FAERS Safety Report 19965105 (Version 2)
Quarter: 2021Q4

REPORT INFORMATION
  Report Type: Report from Study
  Country: US (occurrence: US)
  Receive Date: 20211018
  Receipt Date: 20211220
  Transmission Date: 20220303
  Serious: Yes (Other)
  Sender: FDA-Public Use
  Company Number: US-BAYER-2021A219200

PATIENT
  Age: 67 Year
  Sex: Male

DRUGS (8)
  1. STIVARGA [Suspect]
     Active Substance: REGORAFENIB
     Indication: Colorectal cancer
     Dosage: DAILY DOSE 80 MG
     Route: 048
     Dates: start: 20210920, end: 20210926
  2. STIVARGA [Suspect]
     Active Substance: REGORAFENIB
     Indication: Colorectal cancer
     Dosage: DAILY DOSE 120 MG
     Route: 048
     Dates: start: 20210927, end: 20210927
  3. XELODA [Concomitant]
     Active Substance: CAPECITABINE
     Dosage: 15 MG, QD
  4. FENTANYL [Concomitant]
     Active Substance: FENTANYL
     Dosage: 25 MCG
  5. FENTANYL [Concomitant]
     Active Substance: FENTANYL
     Dosage: 50 MCG
  6. OXYCODONE [Concomitant]
     Active Substance: OXYCODONE
     Dosage: 5 MG TOTAL 6 PILLS A DAY
  7. HEPARIN [Concomitant]
     Active Substance: HEPARIN SODIUM
     Dosage: UNK
  8. SODIUM CHLORIDE [Concomitant]
     Active Substance: SODIUM CHLORIDE
     Dosage: UNK

REACTIONS (14)
  - Colorectal cancer [None]
  - Immobile [Recovering/Resolving]
  - Blister [Recovered/Resolved]
  - Pain in extremity [Recovering/Resolving]
  - Hyperkeratosis [Not Recovered/Not Resolved]
  - Energy increased [Recovering/Resolving]
  - Gait disturbance [Not Recovered/Not Resolved]
  - Off label use [Not Recovered/Not Resolved]
  - Pain in extremity [None]
  - Pain [None]
  - Asthenia [None]
  - Fatigue [None]
  - Hypoaesthesia [None]
  - White blood cell count increased [None]

NARRATIVE: CASE EVENT DATE: 20210920
